FAERS Safety Report 12008011 (Version 1)
Quarter: 2016Q1

REPORT INFORMATION
  Report Type: Spontaneous
  Country: FR (occurrence: FR)
  Receive Date: 20160205
  Receipt Date: 20160205
  Transmission Date: 20160526
  Serious: Yes (Hospitalization)
  Sender: FDA-Public Use
  Company Number: FR-BIOVITRUM-2016FR0052

PATIENT
  Age: 78 Year
  Sex: Male
  Weight: 69 kg

DRUGS (7)
  1. CONTRAMAL [Concomitant]
     Active Substance: TRAMADOL HYDROCHLORIDE
  2. MOPRAL [Concomitant]
     Active Substance: OMEPRAZOLE SODIUM
  3. KARDEGIC [Concomitant]
     Active Substance: ASPIRIN LYSINE
  4. CRESTOR [Suspect]
     Active Substance: ROSUVASTATIN CALCIUM
     Route: 048
     Dates: start: 2012
  5. PLAVIX [Concomitant]
     Active Substance: CLOPIDOGREL BISULFATE
  6. CORTANCYL [Concomitant]
     Active Substance: PREDNISONE
  7. KINERET [Suspect]
     Active Substance: ANAKINRA
     Indication: SCHNITZLER^S SYNDROME
     Route: 058
     Dates: start: 20150216

REACTIONS (1)
  - Polyneuropathy [Not Recovered/Not Resolved]

NARRATIVE: CASE EVENT DATE: 201504
